FAERS Safety Report 17929236 (Version 1)
Quarter: 2020Q2

REPORT INFORMATION
  Report Type: Spontaneous
  Country: RU (occurrence: RU)
  Receive Date: 20200623
  Receipt Date: 20200623
  Transmission Date: 20200714
  Serious: Yes (Other)
  Sender: FDA-Public Use
  Company Number: RU-PFIZER INC-2020238935

PATIENT
  Age: 21 Year
  Sex: Male

DRUGS (2)
  1. SOMAVERT [Suspect]
     Active Substance: PEGVISOMANT
     Indication: ACROMEGALY
     Dosage: 10 MG, 2X/DAY
     Route: 058
     Dates: start: 202004
  2. OCTREOTIDE DEPO [Concomitant]
     Indication: ACROMEGALY
     Dosage: 40 MG, ONCE EVERY 28 DAYS
     Route: 030

REACTIONS (10)
  - Retinal detachment [Unknown]
  - Vitreous detachment [Unknown]
  - Vitreous disorder [Unknown]
  - Retinal tear [Unknown]
  - Blood pressure increased [Unknown]
  - Retinal dystrophy [Unknown]
  - Off label use [Unknown]
  - Myopia [Unknown]
  - Retinal degeneration [Unknown]
  - Astigmatism [Unknown]

NARRATIVE: CASE EVENT DATE: 202004
